FAERS Safety Report 9914155 (Version 3)
Quarter: 2014Q3

REPORT INFORMATION
  Report Type: Spontaneous
  Country: CA (occurrence: CA)
  Receive Date: 20140220
  Receipt Date: 20140929
  Transmission Date: 20150326
  Serious: Yes (Other)
  Sender: FDA-Public Use
  Company Number: CA-PFIZER INC-2014046214

PATIENT
  Age: 43 Year
  Sex: Female
  Weight: 60 kg

DRUGS (7)
  1. HYDROMORPHONE HYDROCHLORIDE. [Suspect]
     Active Substance: HYDROMORPHONE HYDROCHLORIDE
     Dosage: 2 MG, PRN
  2. LOVENOX [Concomitant]
     Active Substance: ENOXAPARIN SODIUM
     Dosage: UNK
     Route: 058
  3. MS CONTIN [Suspect]
     Active Substance: MORPHINE SULFATE
     Dosage: 30 MG, 3X/DAY
  4. METHOTREXATE SODIUM. [Suspect]
     Active Substance: METHOTREXATE SODIUM
     Dosage: UNK
  5. IMURAN [Suspect]
     Active Substance: AZATHIOPRINE
     Dosage: UNK
  6. REMICADE [Suspect]
     Active Substance: INFLIXIMAB
     Dosage: 200 MG, UNK
     Route: 042
  7. FENTANYL. [Suspect]
     Active Substance: FENTANYL
     Dosage: 75 MG, CYCLIC, 1 EVERY 3 DAYS
     Route: 062

REACTIONS (10)
  - Chest pain [Unknown]
  - Drug ineffective [Unknown]
  - Hypersomnia [Unknown]
  - Dizziness [Unknown]
  - Loss of consciousness [Unknown]
  - Migraine [Unknown]
  - Muscular weakness [Unknown]
  - Fungal infection [Unknown]
  - Gastritis [Unknown]
  - Constipation [Unknown]
